FAERS Safety Report 16549384 (Version 1)
Quarter: 2019Q3

REPORT INFORMATION
  Report Type: Report from Study
  Country: None (occurrence: AT)
  Receive Date: 20190710
  Receipt Date: 20190710
  Transmission Date: 20191004
  Serious: Yes (Death)
  Sender: FDA-Public Use
  Company Number: AT-ABBVIE-18K-009-2307724-00

PATIENT
  Age: 76 Year
  Sex: Female

DRUGS (2)
  1. DUODOPA [Suspect]
     Active Substance: CARBIDOPA\LEVODOPA
     Dosage: CR DAYTIME: 2 ML/H
     Route: 050
  2. DUODOPA [Suspect]
     Active Substance: CARBIDOPA\LEVODOPA
     Indication: PARKINSON^S DISEASE
     Dosage: 16 H THERAPY:?MD: 5ML CR DAYTIME: 2.3 ML/H ED: 1.2 ML
     Route: 050
     Dates: start: 20120328

REACTIONS (3)
  - Abnormal loss of weight [Recovering/Resolving]
  - Death [Fatal]
  - Dyskinesia [Recovering/Resolving]

NARRATIVE: CASE EVENT DATE: 2018
